FAERS Safety Report 19109068 (Version 4)
Quarter: 2021Q2

REPORT INFORMATION
  Report Type: Spontaneous
  Country: IT (occurrence: IT)
  Receive Date: 20210408
  Receipt Date: 20210506
  Transmission Date: 20210717
  Serious: Yes (Hospitalization)
  Sender: FDA-Public Use
  Company Number: IT-PFIZER INC-2021336954

PATIENT
  Age: 93 Year
  Sex: Female

DRUGS (8)
  1. CLARITHROMYCIN. [Interacting]
     Active Substance: CLARITHROMYCIN
     Indication: ERYSIPELAS
     Dosage: UNK
     Route: 065
  2. WARFARIN SODIUM. [Interacting]
     Active Substance: WARFARIN SODIUM
     Indication: EJECTION FRACTION
     Dosage: 10 MILLIGRAM
     Route: 065
  3. FUROSEMIDE. [Concomitant]
     Active Substance: FUROSEMIDE
     Indication: CARDIAC FAILURE
     Dosage: UNK
  4. ISOPRENALINE [Concomitant]
     Active Substance: ISOPROTERENOL HYDROCHLORIDE
     Indication: BRADYCARDIA
     Dosage: UNK
     Route: 041
  5. WARFARIN SODIUM. [Interacting]
     Active Substance: WARFARIN SODIUM
     Indication: ATRIAL FIBRILLATION
  6. AZITHROMYCIN ANHYDROUS. [Suspect]
     Active Substance: AZITHROMYCIN ANHYDROUS
     Indication: ERYSIPELAS
     Dosage: UNK
     Route: 065
  7. WARFARIN SODIUM. [Interacting]
     Active Substance: WARFARIN SODIUM
     Indication: CARDIAC FAILURE
     Dosage: WEEKLY DOSE OF 16.25 MG
     Route: 065
  8. WARFARIN SODIUM. [Interacting]
     Active Substance: WARFARIN SODIUM
     Indication: ANTICOAGULANT THERAPY
     Dosage: WEEKLY DOSE OF 17.5 MG
     Route: 065

REACTIONS (4)
  - Product use issue [Unknown]
  - International normalised ratio increased [Recovering/Resolving]
  - Drug interaction [Recovered/Resolved]
  - Off label use [Unknown]
